FAERS Safety Report 7094318-4 (Version None)
Quarter: 2010Q4

REPORT INFORMATION
  Report Type: 
  Country: None (occurrence: None)
  Receive Date: 20101110
  Receipt Date: 20101027
  Transmission Date: 20110411
  Serious: Yes (Other)
  Sender: FDA-Public Use
  Company Number: FR-AMGEN-QUU441337

PATIENT

DRUGS (5)
  1. NPLATE [Suspect]
     Indication: IDIOPATHIC THROMBOCYTOPENIC PURPURA
     Dosage: 560 A?G, QWK
     Route: 058
     Dates: start: 20090101, end: 20100922
  2. LAMIVUDINE + ZIDOVUDINE [Suspect]
     Indication: HIV INFECTION
     Dosage: UNK UNK, BID
     Route: 048
     Dates: start: 20100828
  3. DARUNAVIR [Concomitant]
     Dosage: 800 MG, QD
     Route: 048
     Dates: start: 20100407
  4. RITONAVIR [Concomitant]
     Dosage: 100 MG, QD
     Route: 048
     Dates: start: 20100407
  5. TENOFOVIR DISOPROXIL FUMARAT [Concomitant]
     Dosage: UNK UNK, QD
     Route: 048
     Dates: start: 20100828

REACTIONS (2)
  - THERAPEUTIC RESPONSE DECREASED [None]
  - THROMBOCYTOPENIA [None]
